FAERS Safety Report 10045294 (Version 2)
Quarter: 2014Q1

REPORT INFORMATION
  Report Type: Spontaneous
  Country: GB (occurrence: GB)
  Receive Date: 20140328
  Receipt Date: 20140328
  Transmission Date: 20141002
  Serious: Yes (Life-Threatening, Other)
  Sender: FDA-Public Use
  Company Number: GB-B.I. PHARMACEUTICALS,INC./RIDGEFIELD-2014-BI-02395UK

PATIENT
  Sex: Female
  Weight: 50.5 kg

DRUGS (6)
  1. PRADAXA [Suspect]
     Indication: ATRIAL FIBRILLATION
     Dosage: 220 MG
     Route: 065
     Dates: start: 2009
  2. PRADAXA [Suspect]
     Dosage: 110 MG
     Route: 048
     Dates: start: 20111202, end: 20130108
  3. THYROXINE [Concomitant]
     Route: 048
     Dates: start: 20111017
  4. FUROSEMIDE [Concomitant]
     Route: 048
     Dates: start: 20121219
  5. VERAPAMIL [Concomitant]
     Dosage: 240 MG
     Route: 065
  6. BISOPROLOL [Concomitant]
     Dosage: 2.5 MG
     Route: 065

REACTIONS (4)
  - Pericardial haemorrhage [Recovered/Resolved]
  - Cardiac failure congestive [Unknown]
  - Respiratory tract infection [Unknown]
  - Prerenal failure [Unknown]
